FAERS Safety Report 21576418 (Version 7)
Quarter: 2023Q4

REPORT INFORMATION
  Report Type: Spontaneous
  Country: US (occurrence: US)
  Receive Date: 20221110
  Receipt Date: 20231123
  Transmission Date: 20240109
  Serious: Yes (Hospitalization)
  Sender: FDA-Public Use
  Company Number: US-BoehringerIngelheim-2022-BI-201519

PATIENT
  Age: 64 Year
  Sex: Male

DRUGS (2)
  1. COMBIVENT [Suspect]
     Active Substance: ALBUTEROL SULFATE\IPRATROPIUM BROMIDE
     Indication: Chronic obstructive pulmonary disease
     Dosage: 1-2 PUFFS?20.100 MCG
     Route: 048
     Dates: start: 20130701
  2. COMBIVENT [Suspect]
     Active Substance: ALBUTEROL SULFATE\IPRATROPIUM BROMIDE
     Dosage: 1-2 PUFFS
     Route: 055
     Dates: start: 20230227

REACTIONS (8)
  - Chronic obstructive pulmonary disease [Not Recovered/Not Resolved]
  - Diarrhoea [Not Recovered/Not Resolved]
  - Post procedural complication [Unknown]
  - Obstruction gastric [Unknown]
  - Pneumonia [Recovered/Resolved]
  - Fatigue [Not Recovered/Not Resolved]
  - Product delivery mechanism issue [Unknown]
  - Intentional product use issue [Unknown]

NARRATIVE: CASE EVENT DATE: 20220101
